FAERS Safety Report 8109456-4 (Version None)
Quarter: 2012Q1

REPORT INFORMATION
  Report Type: 
  Country: None (occurrence: None)
  Receive Date: 20120202
  Receipt Date: 20120110
  Transmission Date: 20120608
  Serious: No
  Sender: FDA-Public Use
  Company Number: US-AMGEN-USASP2012001890

PATIENT
  Age: 59 Year
  Sex: Male
  Weight: 103.4 kg

DRUGS (10)
  1. CELEBREX [Concomitant]
     Dosage: 100 MG, UNK
  2. ULTRAM [Concomitant]
     Dosage: 50 MG, UNK
  3. ENBREL [Suspect]
     Indication: PRODUCT USED FOR UNKNOWN INDICATION
     Dosage: 50 MG, QWK
     Route: 058
  4. HYDROCODONE BITARTRATE/HOMATROPINE METHYBROMIDE [Concomitant]
     Dosage: UNK
  5. PLAQUENIL [Concomitant]
     Dosage: 200 MG, UNK
  6. MULTIVITAMIN                       /00097801/ [Concomitant]
     Dosage: UNK
  7. CYANOCOBALAMIN [Concomitant]
     Dosage: UNK
  8. ASPIRIN [Concomitant]
     Dosage: 81 MG, UNK
  9. VOLTAREN [Concomitant]
     Dosage: 1 %, UNK
  10. PRAVASTATIN [Concomitant]
     Dosage: 2.5 MG, UNK

REACTIONS (2)
  - URINARY TRACT INFECTION [None]
  - DERMAL CYST [None]
